FAERS Safety Report 24688896 (Version 1)
Quarter: 2024Q4

REPORT INFORMATION
  Report Type: Spontaneous
  Country: AU (occurrence: AU)
  Receive Date: 20241203
  Receipt Date: 20241203
  Transmission Date: 20250115
  Serious: Yes (Other)
  Sender: JOHNSON AND JOHNSON
  Company Number: AU-GRUNENTHAL-2024-137226

PATIENT

DRUGS (6)
  1. TAPENTADOL HYDROCHLORIDE [Suspect]
     Active Substance: TAPENTADOL HYDROCHLORIDE
     Indication: Product used for unknown indication
     Dosage: 19994 DOSAGE FORM
     Dates: start: 201706, end: 201910
  2. FENTANYL [Concomitant]
     Active Substance: FENTANYL
     Indication: Product used for unknown indication
     Dosage: 15460 DOSAGE FORM
     Dates: start: 201404, end: 201906
  3. CODEINE PHOSPHATE [Concomitant]
     Active Substance: CODEINE PHOSPHATE
     Indication: Product used for unknown indication
     Dosage: 13 DOSAGE FORM, 1/DAY
     Dates: start: 201304, end: 201307
  4. DIAZEPAM [Concomitant]
     Active Substance: DIAZEPAM
     Indication: Product used for unknown indication
     Dosage: 55800 DOSAGE FORM
     Dates: start: 200107, end: 201910
  5. QUETIAPINE [Concomitant]
     Active Substance: QUETIAPINE
     Indication: Product used for unknown indication
     Dosage: 2228 DOSAGE FORM
     Dates: start: 201103, end: 201806
  6. TEMAZEPAM [Concomitant]
     Active Substance: TEMAZEPAM
     Indication: Product used for unknown indication
     Dosage: 54550 DOSAGE FORM
     Dates: start: 200107, end: 201910

REACTIONS (4)
  - Drug dependence [Unknown]
  - Victim of sexual abuse [Unknown]
  - Prescription form tampering [Unknown]
  - Prescribed overdose [Unknown]
